FAERS Safety Report 9463756 (Version 4)
Quarter: 2013Q3

REPORT INFORMATION
  Report Type: Report from Study
  Country: JP (occurrence: JP)
  Receive Date: 20130819
  Receipt Date: 20130913
  Transmission Date: 20140515
  Serious: Yes (Hospitalization)
  Sender: FDA-Public Use
  Company Number: JP-MERCK-1308JPN005946

PATIENT
  Age: 64 Year
  Sex: Female

DRUGS (21)
  1. RIBAVIRIN [Suspect]
     Indication: CHRONIC HEPATITIS C
     Dosage: 400 MG, QD
     Route: 048
     Dates: start: 20130625, end: 20130721
  2. RIBAVIRIN [Suspect]
     Dosage: 200 MG,
     Route: 048
     Dates: start: 20130722
  3. PEGINTERFERON ALFA-2A [Suspect]
     Indication: CHRONIC HEPATITIS C
     Dosage: 180 MICROGRAM, QW
     Route: 058
     Dates: start: 20130625, end: 20130716
  4. TELAPREVIR [Suspect]
     Indication: CHRONIC HEPATITIS C
     Dosage: 1500 MG, QD
     Route: 048
     Dates: start: 20130625, end: 20130625
  5. TELAPREVIR [Suspect]
     Dosage: 2.25 G, QD
     Route: 048
     Dates: start: 20130626, end: 20130718
  6. TELAPREVIR [Suspect]
     Dosage: 750 MG, QD
     Route: 048
     Dates: start: 20130719, end: 20130719
  7. CILNIDIPINE [Concomitant]
     Dosage: UNK
  8. DIFLUPREDNATE [Concomitant]
     Dosage: UNK
     Dates: start: 20130704
  9. HYDROCORTISONE BUTYRATE [Concomitant]
     Dosage: UNK
     Dates: start: 20130704
  10. CLOBETASOL PROPIONATE [Concomitant]
     Dosage: 0.05 %, UNK
  11. EPINASTINE HYDROCHLORIDE [Concomitant]
     Dosage: 1 DF, QD
  12. EPINASTINE HYDROCHLORIDE [Concomitant]
     Dosage: 1 DF, QD, 20
     Dates: start: 201308
  13. REBAMIPIDE [Concomitant]
     Dosage: 300 MG, QD
  14. PREDNISOLONE [Concomitant]
     Dosage: 20 MG, QD
     Dates: start: 20130716, end: 20130719
  15. PREDNISOLONE [Concomitant]
     Dosage: 40 MG, QD
     Dates: start: 20130720, end: 20130722
  16. PREDNISOLONE [Concomitant]
     Dosage: 60 MG, QD
     Dates: start: 20130723, end: 201307
  17. PREDNISOLONE [Concomitant]
     Dosage: 50 MG, QD
     Dates: start: 201307, end: 201307
  18. PREDNISOLONE [Concomitant]
     Dosage: 60 MG, QD
     Dates: start: 20130726
  19. PREDNISOLONE [Concomitant]
     Dosage: 30 MG, QD
     Dates: start: 201308
  20. MICONAZOLE [Concomitant]
     Dosage: UNK
  21. FAMOTIDINE [Concomitant]
     Dosage: 20 MG, QD
     Dates: start: 201308

REACTIONS (1)
  - Rash [Not Recovered/Not Resolved]
